FAERS Safety Report 4757898-7 (Version None)
Quarter: 2005Q3

REPORT INFORMATION
  Report Type: 
  Country: None (occurrence: None)
  Receive Date: 20050831
  Receipt Date: 20050819
  Transmission Date: 20060218
  Serious: Yes (Other)
  Sender: FDA-Public Use
  Company Number: 200516287US

PATIENT
  Sex: Female
  Weight: 72.2 kg

DRUGS (7)
  1. LANTUS [Suspect]
     Indication: DIABETES MELLITUS
     Dosage: DOSE UNIT: UNITS
     Route: 058
     Dates: start: 20040101
  2. TOPROL-XL [Concomitant]
     Dosage: DOSE: UNK
  3. LASIX [Concomitant]
     Dosage: DOSE: UNK
  4. DARVOCET-N 100 [Concomitant]
     Dosage: DOSE: UNK
  5. VITAMIN B6 [Concomitant]
     Dosage: DOSE: UNK
  6. FOLIC ACID [Concomitant]
     Dosage: DOSE: UNK
  7. NEURONTIN [Concomitant]
     Dosage: DOSE: UNK

REACTIONS (3)
  - CARPAL TUNNEL DECOMPRESSION [None]
  - LIMB OPERATION [None]
  - PERIPHERAL NERVE OPERATION [None]
